FAERS Safety Report 9785314 (Version 1)
Quarter: 2013Q4

REPORT INFORMATION
  Report Type: Report from Study
  Country: US (occurrence: US)
  Receive Date: 20131227
  Receipt Date: 20131227
  Transmission Date: 20140711
  Serious: Yes (Hospitalization, Other)
  Sender: FDA-Public Use
  Company Number: US-JNJFOC-20131213238

PATIENT
  Sex: Female
  Weight: 78.93 kg

DRUGS (11)
  1. REMICADE [Suspect]
     Indication: ARTHRITIS
     Route: 042
  2. PAIN MEDICATION NOS (OTC) [Suspect]
     Indication: NERVE COMPRESSION
     Route: 065
  3. METHOTREXATE [Concomitant]
     Indication: ARTHRITIS
     Dosage: 15MG TABLET 2.5MG ONCE WEEKLY DAILY??FOR YEARS
     Route: 065
  4. ASPIRIN [Concomitant]
     Indication: ANTICOAGULANT THERAPY
     Dosage: FOR YEARS
     Route: 048
  5. ASPIRIN [Concomitant]
     Indication: ARTHRITIS
     Dosage: FOR YEARS
     Route: 048
  6. CHOLESTYRAMINE [Concomitant]
     Indication: DIABETES MELLITUS
     Route: 048
     Dates: start: 2013
  7. LISINOPRIL [Concomitant]
     Indication: BLOOD PRESSURE
     Route: 048
     Dates: start: 201311
  8. ZOLOFT [Concomitant]
     Indication: NEUROPATHY PERIPHERAL
     Route: 048
     Dates: start: 1980
  9. LIPITOR [Concomitant]
     Indication: BLOOD CHOLESTEROL
     Dosage: FOR YEARS
     Route: 048
  10. AMLODIPINE BESYLATE [Concomitant]
     Indication: BLOOD PRESSURE
     Route: 048
     Dates: start: 2012
  11. ABILIFY [Concomitant]
     Indication: NEUROPATHY PERIPHERAL
     Route: 048
     Dates: start: 2012

REACTIONS (3)
  - Spinal disorder [Unknown]
  - Nerve compression [Unknown]
  - Arthritis [Not Recovered/Not Resolved]
